FAERS Safety Report 14684302 (Version 1)
Quarter: 2018Q1

REPORT INFORMATION
  Report Type: Other
  Country: ES (occurrence: ES)
  Receive Date: 20180327
  Receipt Date: 20180327
  Transmission Date: 20180509
  Serious: Yes (Life-Threatening, Hospitalization, Other)
  Sender: FDA-Public Use
  Company Number: ES-GLENMARK PHARMACEUTICALS-2018GMK033596

PATIENT

DRUGS (2)
  1. MONTELUKAST SODIUM. [Suspect]
     Active Substance: MONTELUKAST SODIUM
     Indication: PRODUCT USED FOR UNKNOWN INDICATION
     Dosage: UNK
     Route: 065
  2. XOLAIR [Suspect]
     Active Substance: OMALIZUMAB
     Indication: ASTHMA
     Dosage: 225 MG, 15 DAY
     Route: 058
     Dates: start: 20140723, end: 20180109

REACTIONS (10)
  - Diarrhoea [Unknown]
  - Eosinophilic granulomatosis with polyangiitis [Recovered/Resolved]
  - Respiratory failure [Unknown]
  - Vasculitis [Unknown]
  - Pyrexia [Unknown]
  - Lung infiltration [Unknown]
  - Eosinophilia [Unknown]
  - Hypotension [Unknown]
  - Bronchospasm [Unknown]
  - Abdominal pain [Unknown]

NARRATIVE: CASE EVENT DATE: 20180116
